FAERS Safety Report 15305977 (Version 2)
Quarter: 2018Q3

REPORT INFORMATION
  Report Type: Spontaneous
  Country: BR (occurrence: BR)
  Receive Date: 20180822
  Receipt Date: 20180915
  Transmission Date: 20181010
  Serious: Yes (Death, Hospitalization, Other)
  Sender: FDA-Public Use
  Company Number: BR-AMGEN-BRASP2018114084

PATIENT
  Age: 80 Year
  Sex: Male
  Weight: 64 kg

DRUGS (13)
  1. SIMVASTATIN. [Concomitant]
     Active Substance: SIMVASTATIN
     Dosage: 20 MG, QD (1 CP/D)
  2. TECNOTECAN [Concomitant]
     Active Substance: IRINOTECAN HYDROCHLORIDE
     Indication: COLON CANCER METASTATIC
     Dosage: 322.98 MG, CYCLICAL (14/14 DAYS)
     Route: 042
     Dates: start: 20180614
  3. DAFLON [Concomitant]
     Dosage: 1000 MG, QD (1 CP/D)
  4. VECTIBIX [Suspect]
     Active Substance: PANITUMUMAB
     Indication: METASTASES TO LIVER
  5. PURAN [Concomitant]
     Active Substance: LEVOTHYROXINE SODIUM
     Dosage: 100 MUG, QD (1 CP/D)
  6. VECTIBIX [Suspect]
     Active Substance: PANITUMUMAB
     Indication: COLON CANCER METASTATIC
     Dosage: 384 MG, CYCLICAL (14/14 DAYS)
     Route: 042
     Dates: start: 20180614
  7. SOMALGIN CARDIO [Concomitant]
     Active Substance: ASPIRIN\DIHYDROXYALUMINUM AMINOACETATE ANHYDROUS\MAGNESIUM CARBONATE
     Dosage: 100 MG, QD (1CP/D)
  8. DUOMO [Concomitant]
     Active Substance: DOXAZOSIN MESYLATE
     Dosage: UNK UNK, QD (1 CP/D)
  9. SELOZOK [Concomitant]
     Active Substance: METOPROLOL SUCCINATE
     Dosage: 25 MG, QD (1 CP/D)
  10. FINASTERIDE. [Concomitant]
     Active Substance: FINASTERIDE
     Dosage: 5 MG, QD (1 CP/D)
  11. XALATAN [Concomitant]
     Active Substance: LATANOPROST
     Dosage: 1 GTT, QD (1 DROP / D)
  12. GRANULOKINE [Suspect]
     Active Substance: FILGRASTIM
     Indication: FEBRILE NEUTROPENIA
     Dosage: UNK
     Route: 065
     Dates: start: 201806
  13. TECNOTECAN [Concomitant]
     Active Substance: IRINOTECAN HYDROCHLORIDE
     Indication: METASTASES TO LIVER

REACTIONS (5)
  - Febrile neutropenia [Unknown]
  - Depressed level of consciousness [Unknown]
  - Gastrointestinal stenosis [Unknown]
  - Death [Fatal]
  - Diarrhoea [Unknown]

NARRATIVE: CASE EVENT DATE: 201806
